FAERS Safety Report 18285372 (Version 1)
Quarter: 2020Q3

REPORT INFORMATION
  Report Type: Spontaneous
  Country: CN (occurrence: CN)
  Receive Date: 20200918
  Receipt Date: 20200918
  Transmission Date: 20201103
  Serious: Yes (Other)
  Sender: FDA-Public Use
  Company Number: CN-BAYER-2020-193689

PATIENT
  Age: 34 Year
  Sex: Female

DRUGS (1)
  1. LEVONORGESTREL. [Suspect]
     Active Substance: LEVONORGESTREL
     Indication: ENDOMETRIAL HYPERPLASIA
     Dosage: 20 ?G PER DAY, CONTINUOUSLY
     Route: 015

REACTIONS (4)
  - Vaginal haemorrhage [Recovered/Resolved]
  - Product use in unapproved indication [None]
  - Endometrial adenocarcinoma [Recovering/Resolving]
  - Off label use [None]
